FAERS Safety Report 10484252 (Version 2)
Quarter: 2014Q3

REPORT INFORMATION
  Report Type: Spontaneous
  Country: JP (occurrence: JP)
  Receive Date: 20140930
  Receipt Date: 20140930
  Transmission Date: 20150326
  Serious: Yes (Hospitalization)
  Sender: FDA-Public Use
  Company Number: PHHY2014JP121723

PATIENT
  Age: 56 Year
  Sex: Female

DRUGS (3)
  1. PREDNISOLONE. [Concomitant]
     Active Substance: PREDNISOLONE
     Indication: MYASTHENIA GRAVIS
     Dosage: UNK
     Route: 048
  2. PREDNISOLONE. [Concomitant]
     Active Substance: PREDNISOLONE
     Dosage: UNK
     Route: 048
  3. NEORAL [Suspect]
     Active Substance: CYCLOSPORINE
     Indication: MYASTHENIA GRAVIS
     Dosage: 200 MG, DAILY
     Route: 048
     Dates: start: 200908, end: 20140815

REACTIONS (5)
  - Proteinuria [Unknown]
  - Bone pain [Unknown]
  - Autoimmune thyroiditis [Unknown]
  - Immunosuppressant drug level decreased [Unknown]
  - Renal failure acute [Unknown]

NARRATIVE: CASE EVENT DATE: 201408
